FAERS Safety Report 4394344-X (Version None)
Quarter: 2004Q3

REPORT INFORMATION
  Report Type: 
  Country: None (occurrence: None)
  Receive Date: 20040712
  Receipt Date: 20040702
  Transmission Date: 20050211
  Serious: Yes (Disabling)
  Sender: FDA-Public Use
  Company Number: CH-BRISTOL-MYERS SQUIBB COMPANY-12630539

PATIENT
  Sex: Male
  Weight: 87 kg

DRUGS (10)
  1. NEFAZODONE HCL [Suspect]
     Indication: DEPRESSION
     Route: 048
     Dates: end: 20031226
  2. EFFEXOR [Suspect]
     Indication: DEPRESSION
     Route: 048
     Dates: start: 20031226, end: 20031228
  3. XANAX [Concomitant]
     Indication: ANXIETY
     Route: 048
  4. TRAZODONE HCL [Concomitant]
     Indication: DEPRESSION
     Route: 048
     Dates: start: 20040601
  5. VALPROIC ACID [Concomitant]
     Indication: DEPRESSION
     Route: 048
  6. TRANXILIUM [Concomitant]
     Indication: ANXIETY
     Route: 048
  7. SIRDALUD [Concomitant]
     Indication: PAIN
     Route: 048
  8. INDERAL [Concomitant]
     Indication: ANXIETY
     Route: 048
  9. OMEPRAZOLE [Concomitant]
     Indication: DYSPEPSIA
     Route: 048
  10. PRAVASTATIN SODIUM [Concomitant]
     Indication: HYPERCHOLESTEROLAEMIA
     Route: 048

REACTIONS (4)
  - DRUG WITHDRAWAL SYNDROME [None]
  - FACIAL PAIN [None]
  - HYPERTENSION [None]
  - PAROSMIA [None]
